FAERS Safety Report 4712741-7 (Version None)
Quarter: 2005Q3

REPORT INFORMATION
  Report Type: 
  Country: None (occurrence: None)
  Receive Date: 20050701
  Receipt Date: 20050315
  Transmission Date: 20060218
  Serious: Yes (Hospitalization)
  Sender: FDA-Public Use
  Company Number: 2005044707

PATIENT
  Age: 71 Year
  Sex: Female

DRUGS (9)
  1. ZOLOFT [Suspect]
     Indication: ILL-DEFINED DISORDER
     Route: 065
  2. FLUOXETINE HCL [Suspect]
     Indication: ILL-DEFINED DISORDER
     Route: 065
  3. ESCITALOPRAM OXALATE [Suspect]
     Indication: ILL-DEFINED DISORDER
     Route: 065
  4. DIAZEPAM [Concomitant]
  5. CLONAZEPAM (CLOAZEPAM) [Concomitant]
  6. METOPROLOL TARTRATE [Concomitant]
  7. HYDROCHLOROTHIAZIDE [Concomitant]
  8. LISINOPRIL [Concomitant]
  9. OXYBUPROCAINE HYDROCHLORIDE (OXYBUPROCAINE HYDROCHLORIDE) [Concomitant]

REACTIONS (4)
  - ASTHENIA [None]
  - BLOOD SODIUM DECREASED [None]
  - DEPRESSION [None]
  - INAPPROPRIATE ANTIDIURETIC HORMONE SECRETION [None]
